FAERS Safety Report 8141839-9 (Version None)
Quarter: 2012Q1

REPORT INFORMATION
  Report Type: 
  Country: None (occurrence: None)
  Receive Date: 20120216
  Receipt Date: 20120207
  Transmission Date: 20120608
  Serious: Yes (Death, Hospitalization)
  Sender: FDA-Public Use
  Company Number: IE-ELI_LILLY_AND_COMPANY-IE201202001199

PATIENT
  Sex: Female

DRUGS (9)
  1. FORTEO [Suspect]
     Indication: OSTEOPOROSIS
     Dosage: 20 UG, UNK
     Dates: start: 20110515
  2. HYDREA [Concomitant]
  3. ALLOPURINOL [Concomitant]
  4. FRUCO [Concomitant]
  5. CALCIUM CARBONATE [Concomitant]
  6. PROTELOS [Concomitant]
  7. PLAVIX [Concomitant]
  8. ISTIN [Concomitant]
  9. ZYDOL                              /00599202/ [Concomitant]

REACTIONS (2)
  - DEATH [None]
  - DYSPNOEA [None]
